FAERS Safety Report 5918835-2 (Version None)
Quarter: 2008Q3

REPORT INFORMATION
  Report Type: 
  Country: None (occurrence: None)
  Receive Date: 20080909
  Receipt Date: 20080806
  Transmission Date: 20090109
  Serious: Yes (Hospitalization)
  Sender: FDA-Public Use
  Company Number: 163-20785-07080334

PATIENT
  Age: 69 Year
  Sex: Male
  Weight: 85.2762 kg

DRUGS (9)
  1. THALOMID [Suspect]
     Indication: MULTIPLE MYELOMA
     Dosage: 150 MG, 3 IN 1 D, ORAL ; 100 MG, 1 IN 1 D, ORAL
     Route: 048
     Dates: start: 20070413, end: 20070501
  2. THALOMID [Suspect]
     Indication: MULTIPLE MYELOMA
     Dosage: 150 MG, 3 IN 1 D, ORAL ; 100 MG, 1 IN 1 D, ORAL
     Route: 048
     Dates: start: 20070518, end: 20070522
  3. THALOMID [Suspect]
  4. COUMADIN [Concomitant]
  5. TAMAZAPAM (TAMAZEPAM) [Concomitant]
  6. SPIRONOLACTONE [Concomitant]
  7. COMBIVENT [Concomitant]
  8. DEXAMETHASONE TAB [Concomitant]
  9. DIOVAN [Concomitant]

REACTIONS (4)
  - HYPOAESTHESIA [None]
  - ISCHAEMIA [None]
  - NAIL DISCOLOURATION [None]
  - THROMBOSIS [None]
